FAERS Safety Report 6303623-8 (Version None)
Quarter: 2009Q3

REPORT INFORMATION
  Report Type: 
  Country: None (occurrence: None)
  Receive Date: 20090807
  Receipt Date: 20090807
  Transmission Date: 20100115
  Serious: No
  Sender: FDA-Public Use
  Company Number: None

PATIENT
  Sex: Female
  Weight: 83.9154 kg

DRUGS (2)
  1. LYRICA [Suspect]
     Indication: PARAESTHESIA
     Dosage: 200 MG 3X DAILY
     Dates: start: 20090125, end: 20090806
  2. LYRICA [Suspect]
     Indication: PELVIC PAIN
     Dosage: 200 MG 3X DAILY
     Dates: start: 20090125, end: 20090806

REACTIONS (14)
  - APHASIA [None]
  - BALANCE DISORDER [None]
  - DYSPNOEA [None]
  - FEELING ABNORMAL [None]
  - FLATULENCE [None]
  - FOOD CRAVING [None]
  - FRUSTRATION [None]
  - GAIT DISTURBANCE [None]
  - INADEQUATE ANALGESIA [None]
  - OEDEMA PERIPHERAL [None]
  - VISION BLURRED [None]
  - WAIST CIRCUMFERENCE INCREASED [None]
  - WEIGHT INCREASED [None]
  - YAWNING [None]
